FAERS Safety Report 5154800-3 (Version None)
Quarter: 2006Q4

REPORT INFORMATION
  Report Type: 
  Country: None (occurrence: None)
  Receive Date: 20061115
  Receipt Date: 20061115
  Transmission Date: 20070319
  Serious: No
  Sender: FDA-Public Use
  Company Number: None

PATIENT
  Age: 37 Year
  Sex: Female
  Weight: 43.9989 kg

DRUGS (1)
  1. PAIN RELIEF ACETAMINOPHEN 500 MG DG GUARANTEED [Suspect]
     Indication: HEADACHE
     Dosage: 2 TABLETS ONCE YESTERDAY PO
     Route: 048
     Dates: start: 20061113, end: 20061113

REACTIONS (3)
  - DIZZINESS [None]
  - DYSGEUSIA [None]
  - NAUSEA [None]
